FAERS Safety Report 9779016 (Version 2)
Quarter: 2013Q4

REPORT INFORMATION
  Report Type: Report from Study
  Country: DE (occurrence: DE)
  Receive Date: 20131223
  Receipt Date: 20131223
  Transmission Date: 20140711
  Serious: Yes (Hospitalization)
  Sender: FDA-Public Use
  Company Number: DE-BRISTOL-MYERS SQUIBB COMPANY-19857408

PATIENT
  Age: 67 Year
  Sex: Male
  Weight: 75 kg

DRUGS (11)
  1. ERBITUX SOLN FOR INF [Suspect]
     Indication: COLORECTAL CANCER METASTATIC
     Route: 042
     Dates: start: 20130606, end: 20131030
  2. BISOPROLOL [Concomitant]
     Indication: HYPERTENSION
     Route: 048
     Dates: start: 20100101
  3. AMLODIPINE [Concomitant]
     Indication: HYPERTENSION
     Route: 048
     Dates: start: 20100101
  4. PANTOZOL [Concomitant]
     Indication: HYPERCHLORHYDRIA
     Route: 048
     Dates: start: 20100101
  5. GLUCOSE [Concomitant]
     Dates: start: 20130606
  6. MAGNESIUM [Concomitant]
     Dates: start: 20130606
  7. CALCIUM [Concomitant]
     Dates: start: 20130606
  8. FLUOROURACIL [Concomitant]
     Indication: COLORECTAL CANCER METASTATIC
     Dates: start: 20130523
  9. OXALIPLATIN [Concomitant]
     Indication: COLORECTAL CANCER METASTATIC
     Dates: start: 20130523
  10. CALCIUM FOLINATE [Concomitant]
     Indication: COLORECTAL CANCER METASTATIC
     Dates: start: 20130523
  11. OPIUM TINCTURE [Concomitant]

REACTIONS (5)
  - Streptococcal sepsis [Recovered/Resolved]
  - Pancytopenia [Recovered/Resolved]
  - Pyrexia [Recovered/Resolved]
  - Chills [Recovered/Resolved]
  - Confusional state [Recovered/Resolved]
